FAERS Safety Report 25672367 (Version 3)
Quarter: 2025Q3

REPORT INFORMATION
  Report Type: Spontaneous
  Country: US (occurrence: US)
  Receive Date: 20250812
  Receipt Date: 20250915
  Transmission Date: 20251021
  Serious: No
  Sender: SANOFI AVENTIS
  Company Number: US-SA-2025SA232819

PATIENT
  Age: 29 Year
  Sex: Female

DRUGS (1)
  1. FABRAZYME [Suspect]
     Active Substance: AGALSIDASE BETA
     Indication: Fabry^s disease
     Dosage: 120 MG (105 MG DOSE USING 35 MG VIAL AND 15 MG DOSE USING 5 MG VIAL), QOW
     Route: 042
     Dates: start: 202008

REACTIONS (3)
  - Illness [Unknown]
  - Weight decreased [Unknown]
  - Gastroenteritis viral [Unknown]

NARRATIVE: CASE EVENT DATE: 20250101
